FAERS Safety Report 12055183 (Version 1)
Quarter: 2016Q1

REPORT INFORMATION
  Report Type: Report from Study
  Country: NL (occurrence: NL)
  Receive Date: 20160209
  Receipt Date: 20160209
  Transmission Date: 20160526
  Serious: Yes (Death)
  Sender: FDA-Public Use
  Company Number: PHHY2016NL017021

PATIENT

DRUGS (2)
  1. ACLASTA [Suspect]
     Active Substance: ZOLEDRONIC ACID
     Dosage: 5 MG, ONCE PER 52 WEEKS
     Route: 042
     Dates: start: 20150120
  2. ACLASTA [Suspect]
     Active Substance: ZOLEDRONIC ACID
     Indication: OSTEOPOROSIS
     Dosage: 5 MG, ONCE PER 52 WEEKS
     Route: 042
     Dates: start: 20131227

REACTIONS (1)
  - Death [Fatal]

NARRATIVE: CASE EVENT DATE: 20160202
